FAERS Safety Report 4826046-7 (Version None)
Quarter: 2005Q4

REPORT INFORMATION
  Report Type: 
  Country: None (occurrence: None)
  Receive Date: 20051110
  Receipt Date: 20051110
  Transmission Date: 20060501
  Serious: Yes (Hospitalization)
  Sender: FDA-Public Use
  Company Number: None

PATIENT
  Age: 77 Year
  Sex: Female
  Weight: 63 kg

DRUGS (18)
  1. GATIFLOXACIN [Suspect]
     Indication: PNEUMONIA
     Dosage: 400 MG Q DAY PO
     Route: 048
     Dates: start: 20051104, end: 20051107
  2. GLARGINE [Concomitant]
  3. LISPRO [Concomitant]
  4. GLIPIZIDE [Concomitant]
  5. OLANZAPINE [Concomitant]
  6. RAMIPRIL [Concomitant]
  7. LANSOPRAZOLE [Concomitant]
  8. ASPIRIN [Concomitant]
  9. CLOPIDOGREL BISULFATE [Concomitant]
  10. AMLODIPINE [Concomitant]
  11. FUROSEMIDE [Concomitant]
  12. LEVALBUTEROL [Concomitant]
  13. FLUTICASONE INH [Concomitant]
  14. RISEDRONATE [Concomitant]
  15. ATORVASTATIN CALCIUM [Concomitant]
  16. METHOTREXATE [Concomitant]
  17. HYDROXYCHLOROQUINE SULFATE [Concomitant]
  18. PREDNISONE BURST [Concomitant]

REACTIONS (1)
  - HYPOGLYCAEMIA [None]
